FAERS Safety Report 5237491-2 (Version None)
Quarter: 2007Q1

REPORT INFORMATION
  Report Type: 
  Country: None (occurrence: None)
  Receive Date: 20070213
  Receipt Date: 20070206
  Transmission Date: 20070707
  Serious: Yes (Other)
  Sender: FDA-Public Use
  Company Number: AU-PFIZER INC-2007010318

PATIENT
  Sex: Male

DRUGS (5)
  1. VIAGRA [Suspect]
  2. NEURONTIN [Concomitant]
  3. TENORMIN [Concomitant]
  4. TRITACE [Concomitant]
  5. KEFLEX [Concomitant]

REACTIONS (5)
  - ERECTILE DYSFUNCTION [None]
  - HYPERAEMIA [None]
  - PENILE VASCULAR DISORDER [None]
  - SKIN DISCOLOURATION [None]
  - TESTIS DISCOMFORT [None]
